FAERS Safety Report 6037347-1 (Version None)
Quarter: 2009Q1

REPORT INFORMATION
  Report Type: 
  Country: None (occurrence: None)
  Receive Date: 20090114
  Receipt Date: 20090105
  Transmission Date: 20090719
  Serious: Yes (Death)
  Sender: FDA-Public Use
  Company Number: GB-ABBOTT-08P-167-0492367-00

PATIENT
  Sex: Male
  Weight: 53.7 kg

DRUGS (4)
  1. RITONAVIR SOFT GELATIN CAPSULES [Suspect]
     Indication: HIV INFECTION
     Route: 048
     Dates: start: 20061114, end: 20070106
  2. TIPRANAVIR [Concomitant]
     Indication: HIV INFECTION
     Route: 048
     Dates: start: 20061114, end: 20070106
  3. LAMIVUDINE [Concomitant]
     Indication: HIV TEST POSITIVE
     Dates: start: 20061114, end: 20070106
  4. STAVUDINE [Concomitant]
     Indication: HIV TEST POSITIVE
     Dates: start: 20061114, end: 20070106

REACTIONS (2)
  - GASTRIC HAEMORRHAGE [None]
  - MYOCARDIAL ISCHAEMIA [None]
